FAERS Safety Report 8487143-0 (Version None)
Quarter: 2012Q3

REPORT INFORMATION
  Report Type: 
  Country: None (occurrence: None)
  Receive Date: 20120704
  Receipt Date: 20120625
  Transmission Date: 20120928
  Serious: Yes (Other)
  Sender: FDA-Public Use
  Company Number: CA-BRISTOL-MYERS SQUIBB COMPANY-16714271

PATIENT
  Age: 60 Year
  Sex: Female

DRUGS (1)
  1. ONGLYZA [Suspect]
     Indication: BLOOD GLUCOSE INCREASED
     Route: 048
     Dates: start: 20120229

REACTIONS (2)
  - URINARY BLADDER HAEMORRHAGE [None]
  - ABDOMINAL PAIN UPPER [None]
